FAERS Safety Report 6837468-7 (Version None)
Quarter: 2010Q3

REPORT INFORMATION
  Report Type: 
  Country: None (occurrence: None)
  Receive Date: 20100713
  Receipt Date: 20070516
  Transmission Date: 20110219
  Serious: No
  Sender: FDA-Public Use
  Company Number: US-PFIZER INC-2007039830

PATIENT
  Age: 56 Year
  Sex: Male
  Weight: 91.363 kg

DRUGS (4)
  1. CHANTIX [Suspect]
     Indication: SMOKING CESSATION THERAPY
     Route: 048
     Dates: start: 20070501
  2. CIPROFLOXACIN [Concomitant]
     Indication: RASH
  3. MEVACOR [Concomitant]
  4. VALIUM [Concomitant]

REACTIONS (1)
  - NAUSEA [None]
